FAERS Safety Report 5457035-X (Version None)
Quarter: 2007Q3

REPORT INFORMATION
  Report Type: 
  Country: None (occurrence: None)
  Receive Date: 20070918
  Receipt Date: 20070330
  Transmission Date: 20080115
  Serious: No
  Sender: FDA-Public Use
  Company Number: US-ASTRAZENECA-2006UW27938

PATIENT
  Age: 49 Year
  Sex: Female
  Weight: 90 kg

DRUGS (2)
  1. SEROQUEL [Suspect]
     Indication: SLEEP DISORDER
     Route: 048
     Dates: start: 20020528, end: 20020821
  2. SEROQUEL [Suspect]
     Route: 048
     Dates: start: 20020917, end: 20030603

REACTIONS (4)
  - DIABETES MELLITUS [None]
  - DYSPNOEA [None]
  - INTERVERTEBRAL DISC OPERATION [None]
  - NEOPLASM SKIN [None]
